FAERS Safety Report 8009576-9 (Version None)
Quarter: 2011Q4

REPORT INFORMATION
  Report Type: 
  Country: None (occurrence: None)
  Receive Date: 20111228
  Receipt Date: 20111219
  Transmission Date: 20120403
  Serious: Yes (Hospitalization, Other)
  Sender: FDA-Public Use
  Company Number: GB-BRISTOL-MYERS SQUIBB COMPANY-14842892

PATIENT
  Age: 71 Year
  Sex: Female

DRUGS (11)
  1. IRBESARTAN [Suspect]
  2. DOXAZOSIN MESYLATE [Suspect]
  3. PERINDOPRIL [Suspect]
     Route: 048
  4. METFORMIN HCL [Suspect]
     Indication: TYPE 2 DIABETES MELLITUS
     Route: 048
  5. GLICLAZIDE [Suspect]
     Indication: TYPE 2 DIABETES MELLITUS
     Dosage: DOSE REDUCED TO 40MG
     Route: 048
  6. ALCOHOL [Suspect]
     Dosage: 1DF:9 UNITS
  7. BENDROFLUMETHIAZIDE [Suspect]
  8. ATENOLOL [Suspect]
     Route: 048
  9. ACETYLSALICYLIC ACID SRT [Suspect]
  10. ALLOPURINOL [Suspect]
     Indication: GOUT
     Route: 048
  11. CLOPIDOGREL BISULFATE [Suspect]

REACTIONS (9)
  - LACTIC ACIDOSIS [None]
  - HYPOTHERMIA [None]
  - HYPOGLYCAEMIC COMA [None]
  - LOWER RESPIRATORY TRACT INFECTION [None]
  - HYPOGLYCAEMIA [None]
  - RENAL FAILURE ACUTE [None]
  - FALL [None]
  - RENAL CYST [None]
  - DEHYDRATION [None]
